FAERS Safety Report 19569962 (Version 1)
Quarter: 2021Q3

REPORT INFORMATION
  Report Type: Spontaneous
  Country: ES (occurrence: ES)
  Receive Date: 20210715
  Receipt Date: 20210715
  Transmission Date: 20211014
  Serious: Yes (Other)
  Sender: FDA-Public Use
  Company Number: ES-PFIZER INC-2021844991

PATIENT
  Age: 7 Year
  Sex: Male

DRUGS (13)
  1. METHOTREXATE SODIUM. [Suspect]
     Active Substance: METHOTREXATE SODIUM
     Indication: T-CELL TYPE ACUTE LEUKAEMIA
     Dosage: UNK, CYCLIC
  2. TENIPOSIDE. [Suspect]
     Active Substance: TENIPOSIDE
     Indication: T-CELL TYPE ACUTE LEUKAEMIA
     Dosage: UNK, CYCLIC
  3. AMIKACIN. [Concomitant]
     Active Substance: AMIKACIN
     Indication: CULTURE STOOL
     Dosage: UNK
     Route: 048
  4. DEXAMETHASONE. [Suspect]
     Active Substance: DEXAMETHASONE
     Indication: T-CELL TYPE ACUTE LEUKAEMIA
     Dosage: UNK; (FIRST CYCLE)
  5. CYCLOPHOSPHAMIDE. [Suspect]
     Active Substance: CYCLOPHOSPHAMIDE
     Indication: T-CELL TYPE ACUTE LEUKAEMIA
     Dosage: UNK, CYCLIC
  6. MITOXANTRONE [Suspect]
     Active Substance: MITOXANTRONE HYDROCHLORIDE
     Indication: T-CELL TYPE ACUTE LEUKAEMIA
     Dosage: UNK
  7. VINCRISTINE SULFATE. [Suspect]
     Active Substance: VINCRISTINE SULFATE
     Indication: T-CELL TYPE ACUTE LEUKAEMIA
     Dosage: UNK, CYCLIC
  8. DEXAMETHASONE. [Suspect]
     Active Substance: DEXAMETHASONE
     Dosage: UNK; (SECOND CYCLE)
  9. ASPARAGINASE [Suspect]
     Active Substance: ASPARAGINASE
     Indication: T-CELL TYPE ACUTE LEUKAEMIA
     Dosage: UNK, CYCLIC; (FIRST CYCLE)
  10. ASPARAGINASE [Suspect]
     Active Substance: ASPARAGINASE
     Dosage: UNK, CYCLIC; (SECOND CYCLE)
  11. AMPHOTERICIN B. [Concomitant]
     Active Substance: AMPHOTERICIN B
     Indication: CULTURE STOOL
     Dosage: UNK
     Route: 048
  12. VANCOMYCIN [Concomitant]
     Active Substance: VANCOMYCIN
     Indication: CULTURE STOOL
     Dosage: UNK
     Route: 048
  13. CYTARABINE. [Suspect]
     Active Substance: CYTARABINE
     Indication: T-CELL TYPE ACUTE LEUKAEMIA
     Dosage: UNK, CYCLIC

REACTIONS (5)
  - Neutropenia [Unknown]
  - Pancytopenia [Unknown]
  - Candida infection [Unknown]
  - Pseudomonas infection [Unknown]
  - Streptococcal infection [Unknown]
